FAERS Safety Report 24745061 (Version 1)
Quarter: 2024Q4

REPORT INFORMATION
  Report Type: Report from Study
  Country: US (occurrence: US)
  Receive Date: 20241217
  Receipt Date: 20241217
  Transmission Date: 20250115
  Serious: Yes (Hospitalization)
  Sender: BIOGEN
  Company Number: US-BIOGEN-2024BI01264845

PATIENT
  Sex: Male
  Weight: 37.228 kg

DRUGS (2)
  1. SKYCLARYS [Suspect]
     Active Substance: OMAVELOXOLONE
     Indication: Friedreich^s ataxia
     Route: 050
  2. SKYCLARYS [Suspect]
     Active Substance: OMAVELOXOLONE
     Route: 050
     Dates: start: 20240220

REACTIONS (5)
  - Meningitis [Unknown]
  - Post procedural complication [Unknown]
  - Postoperative wound infection [Unknown]
  - Nausea [Unknown]
  - Vomiting [Unknown]
